FAERS Safety Report 7362021-9 (Version None)
Quarter: 2011Q1

REPORT INFORMATION
  Report Type: 
  Country: None (occurrence: None)
  Receive Date: 20110318
  Receipt Date: 20110314
  Transmission Date: 20110831
  Serious: Yes (Other)
  Sender: FDA-Public Use
  Company Number: US-PFIZER INC-2011056448

PATIENT
  Sex: Male

DRUGS (4)
  1. TRAMADOL [Concomitant]
     Indication: BACK PAIN
     Dosage: 50 MG, 1X/DAY
  2. ACETAMINOPHEN [Concomitant]
     Dosage: UNK
  3. TRIAZOLAM [Suspect]
     Indication: SLEEP DISORDER
     Dosage: 0.25 MG, UNK
     Dates: start: 20110101
  4. LIPITOR [Concomitant]
     Indication: BLOOD CHOLESTEROL INCREASED
     Dosage: UNK

REACTIONS (4)
  - DRUG INEFFECTIVE [None]
  - DYSKINESIA [None]
  - INSOMNIA [None]
  - PARAESTHESIA [None]
